FAERS Safety Report 6561965-5 (Version None)
Quarter: 2010Q1

REPORT INFORMATION
  Report Type: 
  Country: None (occurrence: None)
  Receive Date: 20100130
  Receipt Date: 20091119
  Transmission Date: 20100710
  Serious: No
  Sender: FDA-Public Use
  Company Number: US-ABBOTT-09P-163-0593297-00

PATIENT
  Sex: Female
  Weight: 60.382 kg

DRUGS (2)
  1. HUMIRA [Suspect]
     Indication: CROHN'S DISEASE
     Dosage: STARTED USING THE PEN AND SWITCHED TO THE SYRINGE
     Dates: start: 20070922, end: 20090601
  2. HUMIRA [Suspect]
     Dates: start: 20090701

REACTIONS (10)
  - ARTHRALGIA [None]
  - DIARRHOEA [None]
  - FREQUENT BOWEL MOVEMENTS [None]
  - INJECTION SITE IRRITATION [None]
  - INJECTION SITE PRURITUS [None]
  - INJECTION SITE RASH [None]
  - INJECTION SITE SWELLING [None]
  - INJECTION SITE WARMTH [None]
  - NEUROPATHY PERIPHERAL [None]
  - SINUS DISORDER [None]
